FAERS Safety Report 18131698 (Version 4)
Quarter: 2022Q3

REPORT INFORMATION
  Report Type: Report from Study
  Country: JP (occurrence: JP)
  Receive Date: 20200810
  Receipt Date: 20220913
  Transmission Date: 20221026
  Serious: Yes (Hospitalization)
  Sender: FDA-Public Use
  Company Number: JP-BAXTER-2020BAX016102

PATIENT
  Sex: Female

DRUGS (12)
  1. CYCLOPHOSPHAMIDE [Suspect]
     Active Substance: CYCLOPHOSPHAMIDE
     Indication: Triple negative breast cancer
     Dosage: 600 MG/M2,EVERY 2 WK
     Route: 042
     Dates: start: 20200121, end: 20200207
  2. ATEZOLIZUMAB [Suspect]
     Active Substance: ATEZOLIZUMAB
     Indication: Triple negative breast cancer
     Dosage: 840 MG, EVERY 2 WEEKS, GENETICAL RECOMBINATION
     Route: 042
     Dates: start: 20191015
  3. ATEZOLIZUMAB [Suspect]
     Active Substance: ATEZOLIZUMAB
     Dosage: 840 MG, EVERY 2 WEEKS, GENETICAL RECOMBINATION, LAST DOSE PRIOR TO ANOREXIA GRADE 2
     Route: 042
     Dates: start: 20191029, end: 20191029
  4. ATEZOLIZUMAB [Suspect]
     Active Substance: ATEZOLIZUMAB
     Dosage: 840 MG, EVERY 2 WEEKS, GENETICAL RECOMBINATION, LAST DOSE PRIOR TO AE DEPRESSION
     Route: 042
     Dates: start: 20191112, end: 20191112
  5. ATEZOLIZUMAB [Suspect]
     Active Substance: ATEZOLIZUMAB
     Dosage: 840 MG, EVERY 2 WEEKS, GENETICAL RECOMBINATION, LAST DOSE PRIOR TO SERIOUS DEPRESSION GRADE 3
     Route: 042
     Dates: start: 20200121, end: 20200121
  6. PACLITAXEL [Suspect]
     Active Substance: PACLITAXEL
     Indication: Triple negative breast cancer
     Dosage: 125 MILLIGRAM,1X A WEEK
     Route: 042
     Dates: start: 20191015
  7. PACLITAXEL [Suspect]
     Active Substance: PACLITAXEL
     Dosage: 125 MG, 1XA WEEK, LAST DOSE PRIOR TO ANOREXIA GRADE 2
     Route: 042
     Dates: start: 20191029, end: 20191029
  8. PACLITAXEL [Suspect]
     Active Substance: PACLITAXEL
     Dosage: 125 MG, 1XA WEEK, LAST DOSE PRIOR TO DEPRESSION
     Route: 042
     Dates: start: 20191112, end: 20191112
  9. PACLITAXEL [Suspect]
     Active Substance: PACLITAXEL
     Dosage: 125 MG, 1XA WEEK LAST DOSE PRIOR TO SERIOUS DEPRESSION GRADE 3
     Route: 042
     Dates: start: 20200114, end: 20200114
  10. EPIRUBICIN HYDROCHLORIDE [Suspect]
     Active Substance: EPIRUBICIN HYDROCHLORIDE
     Indication: Triple negative breast cancer
     Dosage: 90 MG/M2,EVERY 2 WK
     Route: 042
     Dates: start: 20200121, end: 20200207
  11. DOXORUBICIN HYDROCHLORIDE [Concomitant]
     Active Substance: DOXORUBICIN HYDROCHLORIDE
     Indication: Product used for unknown indication
     Dosage: UNK, PRN
     Route: 042
  12. PEGFILGRASTIM [Concomitant]
     Active Substance: PEGFILGRASTIM
     Indication: Product used for unknown indication
     Dosage: 3.6 MILLIGRAM,2X A WEEK
     Route: 065
     Dates: start: 20200122, end: 20200122

REACTIONS (1)
  - Depression [Recovering/Resolving]
